FAERS Safety Report 4620480-6 (Version None)
Quarter: 2005Q1

REPORT INFORMATION
  Report Type: 
  Country: None (occurrence: None)
  Receive Date: 20050324
  Receipt Date: 20050315
  Transmission Date: 20050727
  Serious: Yes (Other)
  Sender: FDA-Public Use
  Company Number: STA-AE-05-007

PATIENT
  Age: 18 Year
  Sex: Male

DRUGS (2)
  1. VERAPAMIL [Suspect]
     Indication: HEADACHE
     Dosage: 480 MG DAILY
  2. VERAPAMIL [Suspect]
     Indication: HEADACHE
     Dosage: 640 MG DAILY

REACTIONS (9)
  - CARDIAC DISORDER [None]
  - CLUSTER HEADACHE [None]
  - DRUG INEFFECTIVE [None]
  - GENERALISED OEDEMA [None]
  - GINGIVAL BLEEDING [None]
  - GINGIVAL HYPERPLASIA [None]
  - LOSS OF CONSCIOUSNESS [None]
  - SYNCOPE [None]
  - TOOTH DISORDER [None]
